FAERS Safety Report 16918532 (Version 8)
Quarter: 2020Q3

REPORT INFORMATION
  Report Type: Spontaneous
  Country: US (occurrence: US)
  Receive Date: 20191015
  Receipt Date: 20200824
  Transmission Date: 20201102
  Serious: Yes (Other)
  Sender: FDA-Public Use
  Company Number: US-PFIZER INC-2019226520

PATIENT
  Age: 63 Year
  Sex: Male
  Weight: 83.91 kg

DRUGS (5)
  1. LYRICA [Suspect]
     Active Substance: PREGABALIN
     Indication: SPINAL OSTEOARTHRITIS
     Dosage: 150 MG, AS NEEDED (THREE TIMES DAILY)
     Route: 048
  2. LYRICA [Suspect]
     Active Substance: PREGABALIN
     Indication: NEURALGIA
  3. LYRICA [Suspect]
     Active Substance: PREGABALIN
     Indication: RADICULOPATHY
     Dosage: 150 MG, AS NEEDED ((1 CAPSULE (150 MG TOTAL) THREE TIMES DAILY AS NEEDED))
     Route: 048
     Dates: start: 20191211
  4. LYRICA [Suspect]
     Active Substance: PREGABALIN
     Indication: PAIN
     Dosage: 150 MG, 3X/DAY, [150MG CAPSULE BY MOUTH, THREE TIME A DAY]
     Route: 048
     Dates: end: 202007
  5. HYDROCODONE [Concomitant]
     Active Substance: HYDROCODONE
     Dosage: UNK

REACTIONS (5)
  - Diabetic neuropathy [Unknown]
  - Pelvic fracture [Unknown]
  - Thinking abnormal [Unknown]
  - Movement disorder [Unknown]
  - Accident [Unknown]
